FAERS Safety Report 9428095 (Version 1)
Quarter: 2013Q3

REPORT INFORMATION
  Report Type: Spontaneous
  Country: US (occurrence: US)
  Receive Date: 20130730
  Receipt Date: 20130730
  Transmission Date: 20140515
  Serious: No
  Sender: FDA-Public Use
  Company Number: US-ABBOTT-12P-163-0992048-00

PATIENT
  Age: 59 Year
  Sex: Female
  Weight: 61.29 kg

DRUGS (6)
  1. NIASPAN [Suspect]
     Indication: BLOOD CHOLESTEROL INCREASED
     Dates: start: 20121002
  2. GLUCOSAMINE CHONDROITIN [Concomitant]
     Indication: ARTHRALGIA
  3. VITAMIN D [Concomitant]
     Indication: MINERAL SUPPLEMENTATION
  4. CALCIUM [Concomitant]
     Indication: MINERAL SUPPLEMENTATION
  5. BABY ASPIRIN [Concomitant]
     Indication: PRODUCT USED FOR UNKNOWN INDICATION
  6. OMEGA 3 [Concomitant]
     Indication: VITAMIN SUPPLEMENTATION

REACTIONS (5)
  - Nervousness [Recovered/Resolved]
  - Dizziness [Recovering/Resolving]
  - Headache [Not Recovered/Not Resolved]
  - Nervousness [Recovering/Resolving]
  - Musculoskeletal pain [Recovered/Resolved]
